FAERS Safety Report 4379299-6 (Version None)
Quarter: 2004Q2

REPORT INFORMATION
  Report Type: 
  Country: None (occurrence: None)
  Receive Date: 20040610
  Receipt Date: 20040524
  Transmission Date: 20050107
  Serious: No
  Sender: FDA-Public Use
  Company Number: 1-11399400

PATIENT
  Sex: Female

DRUGS (1)
  1. ORAPRED [Suspect]
     Indication: ECZEMA
     Dosage: 2.5 ML, ONCE, ORAL
     Route: 048
     Dates: start: 20040227, end: 20040227

REACTIONS (1)
  - ANAPHYLACTOID REACTION [None]
